FAERS Safety Report 9002186 (Version 1)
Quarter: 2013Q1

REPORT INFORMATION
  Report Type: Spontaneous
  Country: US (occurrence: None)
  Receive Date: 20130103
  Receipt Date: 20130103
  Transmission Date: 20140127
  Serious: Yes (Other)
  Sender: FDA-Public Use
  Company Number: None

PATIENT
  Age: 52 Year
  Sex: Female
  Weight: 86.37 kg

DRUGS (14)
  1. IPILIMUMAB [Suspect]
     Indication: MALIGNANT MELANOMA
     Dosage: 10MG/KG  X1 DOSE  IV
     Route: 042
     Dates: start: 20121008, end: 20121008
  2. ATENOLOL [Concomitant]
  3. IMMITREX [Concomitant]
  4. DOXYCYCLINE [Concomitant]
  5. IBPROFEN [Concomitant]
  6. CHLORTHALIDONE [Concomitant]
  7. KDUR [Concomitant]
  8. VICODIN [Concomitant]
  9. COLACE [Concomitant]
  10. BENADRYL [Concomitant]
  11. CLARITIN [Concomitant]
  12. PEPCID [Concomitant]
  13. SARNA LOTION [Concomitant]
  14. IMMODIUM [Concomitant]

REACTIONS (3)
  - Influenza [None]
  - Fatigue [None]
  - Lipase increased [None]
